FAERS Safety Report 5224507-2 (Version None)
Quarter: 2007Q1

REPORT INFORMATION
  Report Type: 
  Country: None (occurrence: None)
  Receive Date: 20070130
  Receipt Date: 20070118
  Transmission Date: 20070707
  Serious: Yes (Hospitalization, Other)
  Sender: FDA-Public Use
  Company Number: PH-PFIZER INC-2007005120

PATIENT
  Sex: Male
  Weight: 67 kg

DRUGS (5)
  1. SU-011,248 [Suspect]
     Indication: RENAL CELL CARCINOMA STAGE UNSPECIFIED
     Route: 048
     Dates: start: 20061227, end: 20070112
  2. FLUIMUCIL [Concomitant]
     Route: 048
  3. NEUROBION [Concomitant]
     Route: 048
     Dates: start: 20060323
  4. LIPITOR [Concomitant]
     Route: 048
     Dates: start: 20050808
  5. NEURONTIN [Concomitant]
     Route: 048
     Dates: start: 20060323

REACTIONS (1)
  - ANORECTAL CELLULITIS [None]
